FAERS Safety Report 15306897 (Version 1)
Quarter: 2018Q3

REPORT INFORMATION
  Report Type: Spontaneous
  Country: BE (occurrence: BE)
  Receive Date: 20180822
  Receipt Date: 20180822
  Transmission Date: 20181010
  Serious: Yes (Other)
  Sender: FDA-Public Use
  Company Number: BE-MYLANLABS-2018M1062484

PATIENT
  Age: 34 Year
  Sex: Male

DRUGS (4)
  1. LAMOTRIGINE. [Concomitant]
     Active Substance: LAMOTRIGINE
     Indication: BIPOLAR II DISORDER
     Route: 065
  2. ESCITALOPRAM [Concomitant]
     Active Substance: ESCITALOPRAM OXALATE
     Indication: PANIC DISORDER
     Route: 065
  3. LITHIUM. [Suspect]
     Active Substance: LITHIUM
     Indication: MOOD SWINGS
     Route: 065
  4. LITHIUM. [Suspect]
     Active Substance: LITHIUM
     Dosage: 1250 MG SPREAD OVER TWO ADMINISTRATIONS (IN THE EVENING AND IN THE MORNING)
     Route: 065

REACTIONS (8)
  - Faecaloma [Unknown]
  - Constipation [Recovered/Resolved]
  - Memory impairment [Unknown]
  - Polyuria [Unknown]
  - Fatigue [Unknown]
  - Polydipsia [Unknown]
  - Tremor [Unknown]
  - Headache [Unknown]
